FAERS Safety Report 9743259 (Version 1)
Quarter: 2013Q4

REPORT INFORMATION
  Report Type: Spontaneous
  Country: US (occurrence: US)
  Receive Date: 20131210
  Receipt Date: 20131210
  Transmission Date: 20140711
  Serious: No
  Sender: FDA-Public Use
  Company Number: US-GILEAD-2009-0025178

PATIENT
  Age: 69 Year
  Sex: Female
  Weight: 107.5 kg

DRUGS (12)
  1. LETAIRIS [Suspect]
     Indication: PULMONARY ARTERIAL HYPERTENSION
     Route: 048
     Dates: start: 20090817
  2. LASIX [Concomitant]
  3. SYNTHROID [Concomitant]
  4. DIOVAN [Concomitant]
  5. IMDUR [Concomitant]
  6. METOPROLOL [Concomitant]
  7. NEXIUM [Concomitant]
  8. PLAVIX [Concomitant]
  9. BENADRYL [Concomitant]
  10. MOBIC [Concomitant]
  11. NITRO-TIME [Concomitant]
  12. HYDROCODONE [Concomitant]

REACTIONS (1)
  - Constipation [Not Recovered/Not Resolved]
